FAERS Safety Report 13860799 (Version 1)
Quarter: 2017Q3

REPORT INFORMATION
  Report Type: Spontaneous
  Country: US (occurrence: US)
  Receive Date: 20170811
  Receipt Date: 20170811
  Transmission Date: 20171127
  Serious: Yes (Hospitalization)
  Sender: FDA-Public Use
  Company Number: None

PATIENT
  Age: 66 Year
  Sex: Female
  Weight: 87.1 kg

DRUGS (5)
  1. CARBOPLATIN. [Suspect]
     Active Substance: CARBOPLATIN
     Dates: end: 20170706
  2. AMLODIPINE [Concomitant]
     Active Substance: AMLODIPINE BESYLATE
  3. METFORMIN HYDROCHLORIDE. [Concomitant]
     Active Substance: METFORMIN HYDROCHLORIDE
     Dates: end: 20170706
  4. HYDROCHLOROTHIAZIDE. [Concomitant]
     Active Substance: HYDROCHLOROTHIAZIDE
  5. TAXOL [Concomitant]
     Active Substance: PACLITAXEL
     Dates: end: 20170706

REACTIONS (10)
  - Blood glucose increased [None]
  - Confusional state [None]
  - Blood pressure measurement [None]
  - Grip strength decreased [None]
  - Altered state of consciousness [None]
  - Sinus tachycardia [None]
  - Seizure [None]
  - Unresponsive to stimuli [None]
  - Excessive eye blinking [None]
  - Staring [None]

NARRATIVE: CASE EVENT DATE: 20170727
